FAERS Safety Report 13790255 (Version 2)
Quarter: 2017Q3

REPORT INFORMATION
  Report Type: Spontaneous
  Country: US (occurrence: US)
  Receive Date: 20170725
  Receipt Date: 20170830
  Transmission Date: 20171127
  Serious: Yes (Other)
  Sender: FDA-Public Use
  Company Number: US-GALDERMA-US17001552

PATIENT
  Age: 27 Year
  Sex: Female

DRUGS (4)
  1. IRON [Concomitant]
     Active Substance: IRON
     Indication: PRODUCT USED FOR UNKNOWN INDICATION
  2. DIFFERIN [Suspect]
     Active Substance: ADAPALENE
     Indication: ACNE
     Dosage: 0.1%
     Route: 061
     Dates: start: 20170228, end: 20170228
  3. COCONUT OIL [Concomitant]
     Active Substance: COCONUT OIL
     Indication: PRODUCT USED FOR UNKNOWN INDICATION
  4. VICTORIA SECRET SHOWER GEL [Concomitant]
     Indication: PRODUCT USED FOR UNKNOWN INDICATION

REACTIONS (16)
  - Madarosis [Unknown]
  - Eye irritation [Recovered/Resolved]
  - Paraesthesia [Recovered/Resolved]
  - Eye swelling [Not Recovered/Not Resolved]
  - Eyelid margin crusting [Unknown]
  - Eyelid oedema [Unknown]
  - Ocular hyperaemia [Not Recovered/Not Resolved]
  - Skin burning sensation [Unknown]
  - Blindness [Recovered/Resolved]
  - Skin exfoliation [Recovered/Resolved]
  - Lacrimation increased [Not Recovered/Not Resolved]
  - Rash erythematous [Recovered/Resolved]
  - Rash papular [Unknown]
  - Photophobia [Not Recovered/Not Resolved]
  - Eye pruritus [Not Recovered/Not Resolved]
  - Dry skin [Recovered/Resolved]

NARRATIVE: CASE EVENT DATE: 20170228
